FAERS Safety Report 13578754 (Version 1)
Quarter: 2017Q2

REPORT INFORMATION
  Report Type: Spontaneous
  Country: US (occurrence: US)
  Receive Date: 20170524
  Receipt Date: 20170524
  Transmission Date: 20170830
  Serious: Yes (Other)
  Sender: FDA-Public Use
  Company Number: US-JAZZ-2014-US-004815

PATIENT
  Sex: Female

DRUGS (6)
  1. DEXILANT [Concomitant]
     Active Substance: DEXLANSOPRAZOLE
  2. SINGULAIR [Concomitant]
     Active Substance: MONTELUKAST SODIUM
  3. XYREM [Suspect]
     Active Substance: SODIUM OXYBATE
     Indication: NARCOLEPSY
     Dosage: 4.5 G, BID
     Route: 048
     Dates: start: 201301, end: 2013
  4. GRALISE [Concomitant]
     Active Substance: GABAPENTIN
  5. MELOXICAM. [Concomitant]
     Active Substance: MELOXICAM
  6. ZOLOFT [Concomitant]
     Active Substance: SERTRALINE HYDROCHLORIDE

REACTIONS (1)
  - Depression suicidal [Unknown]
